FAERS Safety Report 5206717-3 (Version None)
Quarter: 2007Q1

REPORT INFORMATION
  Report Type: 
  Country: None (occurrence: None)
  Receive Date: 20070109
  Receipt Date: 20061225
  Transmission Date: 20070707
  Serious: Yes (Hospitalization)
  Sender: FDA-Public Use
  Company Number: GXKR2006JP08509

PATIENT
  Age: 32 Year
  Sex: Female
  Weight: 27.3 kg

DRUGS (1)
  1. FUROSEMIDE [Suspect]
     Dosage: 40 MG, QD,

REACTIONS (3)
  - DRUG ABUSER [None]
  - GOUTY TOPHUS [None]
  - RENAL FAILURE [None]
